FAERS Safety Report 4637933-7 (Version None)
Quarter: 2005Q2

REPORT INFORMATION
  Report Type: 
  Country: None (occurrence: None)
  Receive Date: 20050418
  Receipt Date: 20050328
  Transmission Date: 20051028
  Serious: Yes (Other)
  Sender: FDA-Public Use
  Company Number: JP-ROCHE-400532

PATIENT
  Age: 43 Year
  Sex: Female

DRUGS (4)
  1. TAMIFLU [Suspect]
     Indication: INFLUENZA
     Route: 048
  2. FLOMOX [Suspect]
     Indication: INFECTION
     Route: 048
     Dates: start: 20050311, end: 20050312
  3. BAYNAS [Suspect]
     Indication: RHINITIS ALLERGIC
     Route: 048
     Dates: start: 20050310, end: 20050314
  4. CELTECT [Suspect]
     Indication: RHINITIS ALLERGIC
     Route: 048
     Dates: start: 20050310, end: 20050314

REACTIONS (3)
  - ASPARTATE AMINOTRANSFERASE INCREASED [None]
  - BLOOD BILIRUBIN INCREASED [None]
  - HEPATIC FUNCTION ABNORMAL [None]
